FAERS Safety Report 7213783-2 (Version None)
Quarter: 2011Q1

REPORT INFORMATION
  Report Type: 
  Country: None (occurrence: None)
  Receive Date: 20110106
  Receipt Date: 20110105
  Transmission Date: 20110831
  Serious: Yes (Death, Hospitalization, Other)
  Sender: FDA-Public Use
  Company Number: FR-ABBOTT-11P-056-0695247-00

PATIENT
  Sex: Male
  Weight: 74 kg

DRUGS (11)
  1. APROVEL [Suspect]
     Indication: HYPERTENSION
     Dosage: 150 MG DAILY
     Route: 048
     Dates: start: 20100201
  2. NEXIUM [Suspect]
     Indication: HELICOBACTER INFECTION
     Route: 048
  3. CLARITHROMYCIN [Suspect]
     Indication: HELICOBACTER INFECTION
     Dosage: 1 GRAM DAILY
     Route: 048
     Dates: start: 20100424, end: 20100501
  4. LODALES [Suspect]
     Indication: PRODUCT USED FOR UNKNOWN INDICATION
  5. COLCHICINE [Suspect]
     Indication: RHEUMATOID ARTHRITIS
     Dosage: 3 MG DAILY
     Route: 048
     Dates: start: 20100201
  6. COLCHICINE [Suspect]
     Indication: HYPERURICAEMIA
     Dosage: 29 APR2010 2 TABLET/DAY THEN 1TABLET/DAY
     Dates: start: 20100423, end: 20100504
  7. ISOPTIN [Suspect]
     Indication: HYPERTENSION
  8. NOROXIN [Suspect]
     Indication: PRODUCT USED FOR UNKNOWN INDICATION
  9. ACETAMINOPHEN [Suspect]
     Indication: PRODUCT USED FOR UNKNOWN INDICATION
  10. AMOXICILLIN [Suspect]
     Indication: HELICOBACTER INFECTION
     Dosage: 2 GRAMS DAILY
     Route: 048
     Dates: start: 20100424, end: 20100501
  11. SMECTA [Suspect]
     Indication: PRODUCT USED FOR UNKNOWN INDICATION

REACTIONS (4)
  - CARDIO-RESPIRATORY ARREST [None]
  - SHOCK [None]
  - NEUTROPENIA [None]
  - ASPIRATION [None]
